FAERS Safety Report 5092131-0 (Version None)
Quarter: 2006Q3

REPORT INFORMATION
  Report Type: 
  Country: None (occurrence: None)
  Receive Date: 20060825
  Receipt Date: 20060815
  Transmission Date: 20061208
  Serious: Yes (Other)
  Sender: FDA-Public Use
  Company Number: HQWYE590916AUG06

PATIENT
  Age: 40 Year
  Sex: Male

DRUGS (6)
  1. RAPAMUNE [Suspect]
     Indication: PROPHYLAXIS AGAINST TRANSPLANT REJECTION
     Dosage: SEE IMAGE
     Route: 048
     Dates: start: 20051016, end: 20051109
  2. RAPAMUNE [Suspect]
     Indication: PROPHYLAXIS AGAINST TRANSPLANT REJECTION
     Dosage: SEE IMAGE
     Route: 048
     Dates: start: 20051110
  3. CYCLOSPORINE [Suspect]
     Dosage: SEE IMAGE
     Route: 048
     Dates: start: 20050322, end: 20060810
  4. CYCLOSPORINE [Suspect]
     Dosage: SEE IMAGE
     Route: 048
     Dates: start: 20060811
  5. PREDNISONE TAB [Concomitant]
  6. SULFAMETHOXAZOLE + TRIMETHOPRIM [Concomitant]

REACTIONS (1)
  - CHRONIC ALLOGRAFT NEPHROPATHY [None]
